FAERS Safety Report 4317762-4 (Version None)
Quarter: 2004Q1

REPORT INFORMATION
  Report Type: 
  Country: None (occurrence: None)
  Receive Date: 20040312
  Receipt Date: 20040302
  Transmission Date: 20041129
  Serious: Yes (Hospitalization)
  Sender: FDA-Public Use
  Company Number: 205023

PATIENT
  Age: 43 Year
  Sex: Female

DRUGS (2)
  1. XOLAIR [Suspect]
     Indication: ASTHMA
     Dosage: 300 MG,  SINGLE, SUBCUTANEOUS
     Route: 058
     Dates: start: 20040302, end: 20040302
  2. ATROVENT [Suspect]

REACTIONS (7)
  - ANAPHYLACTIC REACTION [None]
  - DYSPHAGIA [None]
  - DYSPNOEA [None]
  - NASAL CONGESTION [None]
  - NASAL SEPTUM DEVIATION [None]
  - THROAT TIGHTNESS [None]
  - WHEEZING [None]
